FAERS Safety Report 25642861 (Version 2)
Quarter: 2025Q3

REPORT INFORMATION
  Report Type: Spontaneous
  Country: JP (occurrence: JP)
  Receive Date: 20250805
  Receipt Date: 20250828
  Transmission Date: 20251021
  Serious: Yes (Hospitalization, Other)
  Sender: IDORSIA PHARMACEUTICALS
  Company Number: JP-IDORSIA-011350-2025-JP

PATIENT
  Age: 15 Year

DRUGS (1)
  1. QUVIVIQ [Suspect]
     Active Substance: DARIDOREXANT
     Indication: Product used for unknown indication
     Route: 048

REACTIONS (4)
  - Intentional overdose [Recovered/Resolved]
  - Suicide attempt [Recovered/Resolved]
  - Somnolence [Unknown]
  - Product use issue [Unknown]
